FAERS Safety Report 22359438 (Version 1)
Quarter: 2023Q2

REPORT INFORMATION
  Report Type: Spontaneous
  Country: US (occurrence: None)
  Receive Date: 20230523
  Receipt Date: 20230523
  Transmission Date: 20230722
  Serious: No
  Sender: FDA-Public Use
  Company Number: None

PATIENT
  Age: 45 Year
  Sex: Male
  Weight: 89.1 kg

DRUGS (8)
  1. BUPROPION [Suspect]
     Active Substance: BUPROPION
     Indication: Depression
     Dosage: OTHER QUANTITY : 1 TABLET(S);?FREQUENCY : DAILY;?
     Route: 048
     Dates: start: 20230127, end: 20230523
  2. BUPROPION [Suspect]
     Active Substance: BUPROPION
     Indication: Somnolence
  3. ASPIRIN (CHEWABLE) [Concomitant]
  4. PRASUGREL [Concomitant]
     Active Substance: PRASUGREL
  5. EZETIMIBE [Concomitant]
     Active Substance: EZETIMIBE
  6. CETIRIZINE [Concomitant]
     Active Substance: CETIRIZINE HYDROCHLORIDE
  7. ROSUVASTATIN [Concomitant]
     Active Substance: ROSUVASTATIN
  8. METOPROLOL SUCCINATE [Concomitant]
     Active Substance: METOPROLOL SUCCINATE

REACTIONS (4)
  - Therapeutic product effect incomplete [None]
  - Therapy change [None]
  - Product substitution issue [None]
  - Suspected product quality issue [None]

NARRATIVE: CASE EVENT DATE: 20230523
